FAERS Safety Report 10695737 (Version 1)
Quarter: 2015Q1

REPORT INFORMATION
  Report Type: Spontaneous
  Country: US (occurrence: None)
  Receive Date: 20150106
  Receipt Date: 20150106
  Transmission Date: 20150721
  Serious: No
  Sender: FDA-Public Use
  Company Number: None

PATIENT
  Age: 63 Year
  Sex: Female

DRUGS (1)
  1. LIDOCAINE. [Suspect]
     Active Substance: LIDOCAINE
     Indication: BIOPSY BREAST
     Dates: start: 20150105, end: 20150105

REACTIONS (3)
  - Erythema [None]
  - Product quality issue [None]
  - Pruritus [None]

NARRATIVE: CASE EVENT DATE: 20150105
